FAERS Safety Report 6415563 (Version 3)
Quarter: 2015Q4

REPORT INFORMATION
  Report Type: Spontaneous
  Country: US (occurrence: US)
  Receive Date: 20070917
  Receipt Date: 20151214
  Transmission Date: 20160305
  Serious: Yes (Other)
  Sender: FDA-Public Use
  Company Number: US-ASTRAZENECA-2006UW12189

PATIENT
  Age: 48 Year
  Sex: Female
  Weight: 98.4 kg

DRUGS (15)
  1. XANAX [Concomitant]
     Active Substance: ALPRAZOLAM
     Indication: SLEEP DISORDER
     Dosage: 0.5-3 MG
     Route: 048
     Dates: start: 20020531
  2. SINEQUAN [Concomitant]
     Active Substance: DOXEPIN HYDROCHLORIDE
     Dates: start: 20020503
  3. GEODON [Concomitant]
     Active Substance: ZIPRASIDONE HYDROCHLORIDE\ZIPRASIDONE MESYLATE
     Dosage: 20-40 MG QHS
     Route: 048
     Dates: start: 20020531
  4. HCTZ [Concomitant]
     Active Substance: HYDROCHLOROTHIAZIDE
     Dates: start: 20051128
  5. JANUMET [Suspect]
     Active Substance: METFORMIN HYDROCHLORIDE\SITAGLIPTIN PHOSPHATE
     Route: 065
     Dates: start: 20100208, end: 20100308
  6. LEXAPRO [Concomitant]
     Active Substance: ESCITALOPRAM OXALATE
     Dosage: 20 MG HALF BID
     Route: 048
     Dates: start: 20040603
  7. BYETTA [Suspect]
     Active Substance: EXENATIDE
     Route: 065
     Dates: start: 20120321, end: 20130307
  8. XANAX [Concomitant]
     Active Substance: ALPRAZOLAM
     Indication: RESTLESSNESS
     Dosage: 0.5-3 MG
     Route: 048
     Dates: start: 20020531
  9. ATIVAN [Concomitant]
     Active Substance: LORAZEPAM
     Dosage: 2-8 MG
     Dates: start: 19980925
  10. RISPERDAL [Concomitant]
     Active Substance: RISPERIDONE
     Dosage: 0.5-3 MG
     Route: 048
     Dates: start: 19970912
  11. BENADRYL [Concomitant]
     Active Substance: DIPHENHYDRAMINE HYDROCHLORIDE
     Dates: start: 19981002
  12. SEROQUEL [Suspect]
     Active Substance: QUETIAPINE FUMARATE
     Dosage: 20-100 MG
     Route: 048
     Dates: start: 19980925
  13. JANUVIA [Suspect]
     Active Substance: SITAGLIPTIN PHOSPHATE
     Route: 065
     Dates: start: 20120217, end: 20120317
  14. REMERON [Concomitant]
     Active Substance: MIRTAZAPINE
     Dates: start: 20020531
  15. TRAZODONE HYDROCHLORIDE. [Concomitant]
     Active Substance: TRAZODONE HYDROCHLORIDE

REACTIONS (4)
  - Pancreatitis [Unknown]
  - Diabetes mellitus [Unknown]
  - Pancreatic carcinoma [Unknown]
  - Type 2 diabetes mellitus [Unknown]

NARRATIVE: CASE EVENT DATE: 2006
